FAERS Safety Report 23217630 (Version 1)
Quarter: 2023Q4

REPORT INFORMATION
  Report Type: Report from Study
  Country: CN (occurrence: CN)
  Receive Date: 20231122
  Receipt Date: 20231122
  Transmission Date: 20240109
  Serious: Yes (Death, Other)
  Sender: FDA-Public Use
  Company Number: CN-PFIZER INC-202300380617

PATIENT
  Age: 49 Year
  Sex: Male

DRUGS (1)
  1. VORICONAZOLE [Suspect]
     Active Substance: VORICONAZOLE
     Indication: Hepatic cirrhosis
     Dosage: 100 MG, 2X/DAY (MAINTENANCE DOSE)

REACTIONS (2)
  - Death [Fatal]
  - Hepatotoxicity [Unknown]
